FAERS Safety Report 6381080-3 (Version None)
Quarter: 2009Q3

REPORT INFORMATION
  Report Type: 
  Country: None (occurrence: None)
  Receive Date: 20090925
  Receipt Date: 20090925
  Transmission Date: 20100115
  Serious: Yes (Disabling)
  Sender: FDA-Public Use
  Company Number: None

PATIENT
  Age: 31 Year
  Sex: Female
  Weight: 54.4316 kg

DRUGS (4)
  1. CIPRO [Suspect]
     Indication: PHARYNGITIS STREPTOCOCCAL
     Dosage: 500MG 2 TIMES PER DAY PO
     Route: 048
     Dates: start: 20090701, end: 20090714
  2. CIPRO [Suspect]
     Indication: URINARY TRACT INFECTION
     Dosage: 500MG 2 TIMES PER DAY PO
     Route: 048
     Dates: start: 20090701, end: 20090714
  3. CIPRO [Suspect]
     Indication: PHARYNGITIS STREPTOCOCCAL
     Dosage: 500MG 2 TIMES PER DAY PO
     Route: 048
     Dates: start: 20090903, end: 20090907
  4. CIPRO [Suspect]
     Indication: URINARY TRACT INFECTION
     Dosage: 500MG 2 TIMES PER DAY PO
     Route: 048
     Dates: start: 20090903, end: 20090907

REACTIONS (5)
  - ARTHRALGIA [None]
  - FATIGUE [None]
  - GAIT DISTURBANCE [None]
  - SWELLING [None]
  - TENDON PAIN [None]
